FAERS Safety Report 6761690-1 (Version None)
Quarter: 2010Q2

REPORT INFORMATION
  Report Type: 
  Country: None (occurrence: None)
  Receive Date: 20100524
  Receipt Date: 20100423
  Transmission Date: 20101027
  Serious: Yes (Life-Threatening, Other)
  Sender: FDA-Public Use
  Company Number: AECAN200900277

PATIENT
  Age: 71 Year
  Sex: Male

DRUGS (1)
  1. IGIVNEX [Suspect]
     Dosage: 500 ML; TOTAL; IV
     Route: 042
     Dates: start: 20090827, end: 20090827

REACTIONS (12)
  - CHILLS [None]
  - DYSPNOEA [None]
  - FLUID OVERLOAD [None]
  - HYPERTENSION [None]
  - HYPOXIA [None]
  - NAUSEA [None]
  - PULMONARY OEDEMA [None]
  - PYREXIA [None]
  - TACHYCARDIA [None]
  - TRANSFUSION REACTION [None]
  - VOMITING [None]
  - WHEEZING [None]
